FAERS Safety Report 7892698-0 (Version None)
Quarter: 2011Q4

REPORT INFORMATION
  Report Type: 
  Country: None (occurrence: None)
  Receive Date: 20111102
  Receipt Date: 20111020
  Transmission Date: 20120403
  Serious: Yes (Other)
  Sender: FDA-Public Use
  Company Number: 2011SP032379

PATIENT
  Age: 52 Year
  Sex: Female

DRUGS (2)
  1. RIBAVIRIN [Suspect]
     Indication: HEPATITIS C
     Dates: start: 20110610
  2. PEG-INTRON [Suspect]
     Indication: HEPATITIS C
     Dosage: 150 MG;QW;SC
     Route: 058
     Dates: start: 20110610

REACTIONS (2)
  - WOLFF-PARKINSON-WHITE SYNDROME [None]
  - CONDITION AGGRAVATED [None]
